FAERS Safety Report 7576716-5 (Version None)
Quarter: 2011Q2

REPORT INFORMATION
  Report Type: 
  Country: None (occurrence: None)
  Receive Date: 20110624
  Receipt Date: 20110624
  Transmission Date: 20111010
  Serious: Yes (Other)
  Sender: FDA-Public Use
  Company Number: None

PATIENT
  Age: 54 Year
  Sex: Female

DRUGS (1)
  1. HUMIRA [Suspect]
     Indication: PSORIASIS
     Dosage: 40MG SQ
     Route: 058
     Dates: start: 20110525, end: 20110601

REACTIONS (6)
  - TREMOR [None]
  - BLEPHAROSPASM [None]
  - VISUAL IMPAIRMENT [None]
  - CHEST PAIN [None]
  - BURNING SENSATION [None]
  - VISION BLURRED [None]
